FAERS Safety Report 25894100 (Version 1)
Quarter: 2025Q4

REPORT INFORMATION
  Report Type: Spontaneous
  Country: US (occurrence: US)
  Receive Date: 20251008
  Receipt Date: 20251008
  Transmission Date: 20260118
  Serious: No
  Sender: ORBION PHARMACEUTICALS PRIVATE LIMITED
  Company Number: US-OrBion-000009

PATIENT
  Age: 73 Year
  Sex: Female
  Weight: 58.51 kg

DRUGS (1)
  1. MODAFINIL [Suspect]
     Active Substance: MODAFINIL
     Indication: Somnolence
     Dosage: 2 TABLETS X 100 MG
     Route: 048
     Dates: start: 20250917

REACTIONS (1)
  - Drug ineffective [Not Recovered/Not Resolved]
